FAERS Safety Report 12628347 (Version 1)
Quarter: 2016Q3

REPORT INFORMATION
  Report Type: Report from Study
  Country: None (occurrence: GB)
  Receive Date: 20160808
  Receipt Date: 20160808
  Transmission Date: 20161109
  Serious: Yes (Other)
  Sender: FDA-Public Use
  Company Number: GB-BIOVITRUM-2011GB0337

PATIENT
  Age: 33 Year
  Sex: Male
  Weight: 77 kg

DRUGS (7)
  1. IMATINIB [Concomitant]
     Active Substance: IMATINIB
     Route: 048
     Dates: start: 20111021, end: 20111117
  2. METOCLOPRAMIDE. [Concomitant]
     Active Substance: METOCLOPRAMIDE
     Indication: NAUSEA
     Route: 048
     Dates: start: 20111026, end: 20111031
  3. PARACETAMOL [Concomitant]
     Active Substance: ACETAMINOPHEN
     Indication: PAIN
     Route: 048
     Dates: start: 20111026, end: 20111027
  4. ACICLOVIR [Concomitant]
     Active Substance: ACYCLOVIR
     Indication: ANTIVIRAL TREATMENT
     Route: 048
     Dates: start: 20111026, end: 20111031
  5. LANSOPRAZOLE. [Concomitant]
     Active Substance: LANSOPRAZOLE
     Indication: GASTROOESOPHAGEAL REFLUX DISEASE
     Route: 048
     Dates: start: 20111026, end: 20111031
  6. VORICONAZOLE. [Concomitant]
     Active Substance: VORICONAZOLE
     Indication: ANTIFUNGAL TREATMENT
     Route: 048
     Dates: start: 20111026, end: 20111031
  7. KEPIVANCE [Suspect]
     Active Substance: PALIFERMIN
     Indication: STOMATITIS
     Route: 042
     Dates: start: 20111112, end: 20111114

REACTIONS (1)
  - Hypersensitivity [Recovered/Resolved]

NARRATIVE: CASE EVENT DATE: 20111111
